FAERS Safety Report 9490869 (Version 3)
Quarter: 2013Q4

REPORT INFORMATION
  Report Type: Spontaneous
  Country: US (occurrence: US)
  Receive Date: 20130830
  Receipt Date: 20131011
  Transmission Date: 20140711
  Serious: No
  Sender: FDA-Public Use
  Company Number: US-PFIZER INC-2013246521

PATIENT
  Age: 70 Year
  Sex: Male

DRUGS (5)
  1. INLYTA [Suspect]
     Indication: MALIGNANT URINARY TRACT NEOPLASM
     Dosage: 5 MG, 2X/DAY (1 TABLET TWICE A DAY)
     Route: 048
     Dates: start: 20130813
  2. INLYTA [Suspect]
     Indication: RENAL CANCER
  3. SERTRALINE [Concomitant]
     Dosage: 100 MG, DAILY
  4. TAMSULOSIN [Concomitant]
     Dosage: 0.4 MG, DAILY
  5. TRAMADOL [Concomitant]
     Indication: PAIN
     Dosage: 50 MG, AS NEEDED

REACTIONS (7)
  - Arthralgia [Unknown]
  - Gait disturbance [Unknown]
  - Drug intolerance [Unknown]
  - Asthenia [Unknown]
  - Fatigue [Unknown]
  - Headache [Unknown]
  - Tachycardia [Unknown]
